FAERS Safety Report 4662350-3 (Version None)
Quarter: 2005Q2

REPORT INFORMATION
  Report Type: 
  Country: None (occurrence: None)
  Receive Date: 20050516
  Receipt Date: 20050502
  Transmission Date: 20051028
  Serious: Yes (Other)
  Sender: FDA-Public Use
  Company Number: JP-JNJFOC-20050405785

PATIENT
  Sex: Male

DRUGS (3)
  1. OXYBUTYNIN [Suspect]
     Indication: NOCTURIA
     Route: 049
  2. GLUCOBAY [Concomitant]
  3. GLIMICRON [Concomitant]

REACTIONS (1)
  - BLOOD CREATINE PHOSPHOKINASE INCREASED [None]
